FAERS Safety Report 14713825 (Version 4)
Quarter: 2018Q4

REPORT INFORMATION
  Report Type: Report from Study
  Country: AR (occurrence: AR)
  Receive Date: 20180404
  Receipt Date: 20181220
  Transmission Date: 20190204
  Serious: Yes (Hospitalization, Other)
  Sender: FDA-Public Use
  Company Number: AR-ROCHE-2097449

PATIENT
  Sex: Male

DRUGS (1)
  1. AVASTIN [Suspect]
     Active Substance: BEVACIZUMAB
     Indication: LUNG NEOPLASM MALIGNANT
     Dosage: DOSE AND FREQUENCY UNKNOWN
     Route: 042
     Dates: start: 20170602

REACTIONS (4)
  - Gait inability [Unknown]
  - Anaemia [Recovered/Resolved]
  - Spinal pain [Recovering/Resolving]
  - Metastatic neoplasm [Unknown]
